FAERS Safety Report 5443629-4 (Version None)
Quarter: 2007Q3

REPORT INFORMATION
  Report Type: 
  Country: None (occurrence: None)
  Receive Date: 20070905
  Receipt Date: 20070829
  Transmission Date: 20080115
  Serious: Yes (Hospitalization, Other)
  Sender: FDA-Public Use
  Company Number: PHHO2007TW10938

PATIENT
  Age: 55 Year
  Sex: Male

DRUGS (12)
  1. TELBIVUDINE VS LAMIVUDINE [Suspect]
     Indication: HEPATITIS B
     Dosage: DOUBLE BLIND
     Route: 048
     Dates: start: 20060809
  2. FUROSEMIDE [Concomitant]
  3. ESOMEPRAZOLE MAGNESIUM [Concomitant]
     Indication: PEPTIC ULCER
  4. TERAZOSIN HYDROCHLORIDE [Concomitant]
     Indication: PROSTATITIS
  5. ACEMETACIN [Concomitant]
     Indication: BACK PAIN
  6. FLUDIAZEPAM [Concomitant]
     Indication: BACK PAIN
  7. ALUMINIUM + MAGNESIUM HYDROXIDE/DIMETICONE [Concomitant]
     Indication: BACK PAIN
  8. LEVOFLOXACIN [Concomitant]
  9. DOMPERIDONE [Concomitant]
  10. ACARBOSE [Concomitant]
  11. SPIRONOLACTONE [Concomitant]
  12. ALFUZOSIN HCL [Concomitant]

REACTIONS (18)
  - ASCITES [None]
  - BENIGN PROSTATIC HYPERPLASIA [None]
  - DYSURIA [None]
  - ENDOSCOPY [None]
  - EXOSTOSIS [None]
  - GASTRIC VARICES [None]
  - GASTROINTESTINAL MUCOSAL DISORDER [None]
  - HAEMOGLOBIN DECREASED [None]
  - OESOPHAGEAL VARICEAL LIGATION [None]
  - PARACENTESIS ABDOMEN [None]
  - PROSTATIC SPECIFIC ANTIGEN INCREASED [None]
  - PROSTATITIS [None]
  - PROTHROMBIN TIME PROLONGED [None]
  - SPINAL OSTEOARTHRITIS [None]
  - URINARY RETENTION [None]
  - URINARY TRACT INFECTION [None]
  - URINE FLOW DECREASED [None]
  - VARICES OESOPHAGEAL [None]
